FAERS Safety Report 14863850 (Version 1)
Quarter: 2018Q2

REPORT INFORMATION
  Report Type: Spontaneous
  Country: US (occurrence: US)
  Receive Date: 20180508
  Receipt Date: 20180508
  Transmission Date: 20180711
  Serious: Yes (Other)
  Sender: FDA-Public Use
  Company Number: US-ALKERMES INC.-ALK-2017-002689

PATIENT
  Sex: Male

DRUGS (2)
  1. VIVITROL [Suspect]
     Active Substance: NALTREXONE
     Indication: DRUG DEPENDENCE
     Dosage: 380 MG, QMO
     Route: 030
     Dates: start: 201705
  2. NALTREXONE [Concomitant]
     Active Substance: NALTREXONE
     Indication: THERAPEUTIC RESPONSE SHORTENED
     Dosage: UNK
     Dates: start: 20170620

REACTIONS (12)
  - Self-injurious ideation [Recovered/Resolved]
  - Substance abuse [Unknown]
  - Depression [Unknown]
  - Suicide attempt [Recovered/Resolved]
  - Feeling abnormal [Unknown]
  - Economic problem [Not Recovered/Not Resolved]
  - Insomnia [Unknown]
  - Suicidal ideation [Recovered/Resolved]
  - Drug dependence [Unknown]
  - Therapeutic response shortened [Unknown]
  - Anger [Unknown]
  - Tachyphrenia [Unknown]

NARRATIVE: CASE EVENT DATE: 2017
